FAERS Safety Report 8955067 (Version 1)
Quarter: 2012Q4

REPORT INFORMATION
  Report Type: 
  Country: BR (occurrence: BR)
  Receive Date: 20121210
  Receipt Date: 20121210
  Transmission Date: 20130627
  Serious: Yes (Other)
  Sender: FDA-Public Use
  Company Number: BR-JNJFOC-20121115022

PATIENT
  Age: 71 Year
  Sex: Female
  Weight: 70 kg

DRUGS (7)
  1. REMINYL ER [Suspect]
     Indication: COGNITIVE DISORDER
     Dosage: in the morning
     Route: 048
     Dates: start: 2010
  2. MICARDIS [Interacting]
     Indication: HYPERTENSION
     Route: 065
     Dates: start: 2010
  3. APRESOLINA [Concomitant]
     Indication: HYPERTENSION
     Route: 065
  4. ACETYLSALICYLIC ACID [Concomitant]
     Indication: PRODUCT USED FOR UNKNOWN INDICATION
     Route: 065
  5. CITALOPRAM [Concomitant]
     Indication: DEPRESSION
     Route: 065
  6. GLIFAGE [Concomitant]
     Indication: DIABETES MELLITUS
     Route: 065
  7. SIMVASTATIN [Concomitant]
     Indication: BLOOD CHOLESTEROL INCREASED
     Route: 065

REACTIONS (6)
  - Drug prescribing error [Recovered/Resolved]
  - Distractibility [Not Recovered/Not Resolved]
  - Drug interaction [Unknown]
  - Vomiting [Not Recovered/Not Resolved]
  - Drug dose omission [Unknown]
  - Somnolence [Not Recovered/Not Resolved]
